FAERS Safety Report 25746221 (Version 2)
Quarter: 2025Q4

REPORT INFORMATION
  Report Type: Spontaneous
  Country: US (occurrence: US)
  Receive Date: 20250901
  Receipt Date: 20251008
  Transmission Date: 20260117
  Serious: Yes (Death)
  Sender: ALVOGEN
  Company Number: US-BMS-IMIDS-REMS_SI-1755711529343

PATIENT
  Sex: Female

DRUGS (1)
  1. LENALIDOMIDE [Suspect]
     Active Substance: LENALIDOMIDE
     Indication: Product used for unknown indication
     Dosage: 10 MG
     Dates: start: 202409

REACTIONS (4)
  - Cardiogenic shock [Fatal]
  - Cardiac arrest [Fatal]
  - Cardiac failure congestive [Fatal]
  - Off label use [Unknown]

NARRATIVE: CASE EVENT DATE: 20240901
